FAERS Safety Report 10931503 (Version 1)
Quarter: 2015Q1

REPORT INFORMATION
  Report Type: Spontaneous
  Country: US (occurrence: US)
  Receive Date: 20150319
  Receipt Date: 20150319
  Transmission Date: 20150721
  Serious: No
  Sender: FDA-Public Use
  Company Number: US-SHIONOGI, INC-2015000134

PATIENT
  Age: 52 Year
  Sex: Female
  Weight: 53 kg

DRUGS (3)
  1. OSPHENA [Suspect]
     Active Substance: OSPEMIFENE
     Indication: OFF LABEL USE
  2. OSPHENA [Suspect]
     Active Substance: OSPEMIFENE
     Indication: ATROPHIC VULVOVAGINITIS
     Dosage: 60 MG, UNK
     Route: 048
     Dates: start: 20141211, end: 20141222
  3. MINIVELLE [Concomitant]
     Active Substance: ESTRADIOL
     Indication: MENOPAUSE
     Dosage: .05 UNK, UNK
     Route: 065
     Dates: start: 20141211, end: 20141221

REACTIONS (4)
  - Labelled drug-drug interaction medication error [Unknown]
  - Headache [Recovered/Resolved]
  - Hot flush [Unknown]
  - Off label use [Unknown]
